FAERS Safety Report 4625434-1 (Version None)
Quarter: 2005Q2

REPORT INFORMATION
  Report Type: 
  Country: None (occurrence: None)
  Receive Date: 20050325
  Receipt Date: 20050217
  Transmission Date: 20051028
  Serious: Yes (Disabling)
  Sender: FDA-Public Use
  Company Number: USA050290230

PATIENT
  Age: 77 Year
  Sex: Female

DRUGS (3)
  1. HUMULIN R [Suspect]
     Indication: DIABETES MELLITUS
     Dates: start: 20030501
  2. FORTEO [Suspect]
     Indication: OSTEOPOROSIS
     Dates: start: 20041201
  3. NOVOLOG MIX 70/30 [Concomitant]

REACTIONS (4)
  - BLOOD GLUCOSE INCREASED [None]
  - DISEASE PROGRESSION [None]
  - MOBILITY DECREASED [None]
  - URINARY INCONTINENCE [None]
